FAERS Safety Report 15718690 (Version 2)
Quarter: 2018Q4

REPORT INFORMATION
  Report Type: Spontaneous
  Country: US (occurrence: US)
  Receive Date: 20181213
  Receipt Date: 20181224
  Transmission Date: 20190205
  Serious: Yes (Other)
  Sender: FDA-Public Use
  Company Number: US-GLAXOSMITHKLINE-US2018GSK218285

PATIENT
  Age: 59 Year
  Sex: Female
  Weight: 115 kg

DRUGS (2)
  1. BENLYSTA [Suspect]
     Active Substance: BELIMUMAB
     Indication: SYSTEMIC LUPUS ERYTHEMATOSUS
     Dosage: 200 MG, CYC
     Route: 042
     Dates: start: 201709
  2. PREDNISONE. [Concomitant]
     Active Substance: PREDNISONE

REACTIONS (11)
  - Wound [Recovered/Resolved with Sequelae]
  - Limb injury [Recovered/Resolved with Sequelae]
  - Infusion site swelling [Unknown]
  - Product dose omission [Unknown]
  - Scar [Not Recovered/Not Resolved]
  - Haemorrhage [Unknown]
  - Underdose [Unknown]
  - Impaired healing [Unknown]
  - Fall [Recovered/Resolved]
  - Infusion site pain [Unknown]
  - Weight increased [Not Recovered/Not Resolved]

NARRATIVE: CASE EVENT DATE: 201712
